FAERS Safety Report 8638533 (Version 3)
Quarter: 2013Q1

REPORT INFORMATION
  Report Type: Spontaneous
  Country: CA (occurrence: None)
  Receive Date: 20120604
  Receipt Date: 20121213
  Transmission Date: 20140127
  Serious: Yes (Other)
  Sender: FDA-Public Use
  Company Number: 2012032488

PATIENT
  Age: 49 Year
  Sex: Male

DRUGS (1)
  1. PRIVIGEN [Suspect]
     Dosage: SEE IMAGE
     Route: 042
     Dates: start: 20120507, end: 20120507

REACTIONS (3)
  - ANAEMIA [None]
  - HAEMOLYSIS [None]
  - OFF LABEL USE [None]
